FAERS Safety Report 10622242 (Version 2)
Quarter: 2015Q2

REPORT INFORMATION
  Report Type: Report from Study
  Country: TR (occurrence: TR)
  Receive Date: 20141203
  Receipt Date: 20150528
  Transmission Date: 20150821
  Serious: Yes (Hospitalization, Congenital Anomaly)
  Sender: FDA-Public Use
  Company Number: TR-NOVOPROD-430893

PATIENT
  Sex: Male
  Weight: 3.3 kg

DRUGS (3)
  1. ACTRAPID [Suspect]
     Active Substance: INSULIN HUMAN
     Indication: GESTATIONAL DIABETES
     Dosage: 48 U, QD
     Route: 064
     Dates: start: 20140712, end: 20140719
  2. DECAVIT                            /06014801/ [Concomitant]
     Indication: VITAMIN SUPPLEMENTATION
     Dosage: 1X1
     Route: 064
     Dates: start: 201405, end: 20141021
  3. INSULATARD NPH HUMAN [Suspect]
     Active Substance: INSULIN HUMAN
     Indication: GESTATIONAL DIABETES
     Dosage: 12 U, QD
     Route: 064
     Dates: start: 20140712, end: 20140719

REACTIONS (2)
  - Foetal exposure during pregnancy [Recovered/Resolved]
  - Anorectal disorder [Recovered/Resolved]

NARRATIVE: CASE EVENT DATE: 20140712
